FAERS Safety Report 4719753-8 (Version None)
Quarter: 2005Q3

REPORT INFORMATION
  Report Type: 
  Country: None (occurrence: None)
  Receive Date: 20050721
  Receipt Date: 20040715
  Transmission Date: 20060218
  Serious: No
  Sender: FDA-Public Use
  Company Number: US-GLAXOSMITHKLINE-A0518531A

PATIENT
  Age: 62 Year
  Sex: Female

DRUGS (8)
  1. AVANDIA [Suspect]
     Dosage: 4MG PER DAY
     Route: 048
     Dates: start: 20040710, end: 20040715
  2. LOPRESSOR [Concomitant]
  3. INDAPAMIDE [Concomitant]
  4. POTASSIUM CHLORIDE [Concomitant]
  5. FLURAZEPAM [Concomitant]
  6. LORAZEPAM [Concomitant]
  7. AMOXAPINE [Concomitant]
  8. HYDRALAZINE [Concomitant]

REACTIONS (1)
  - BLOOD GLUCOSE INCREASED [None]
